FAERS Safety Report 9238316 (Version 2)
Quarter: 2013Q2

REPORT INFORMATION
  Report Type: Spontaneous
  Country: JP (occurrence: None)
  Receive Date: 20130416
  Receipt Date: 20130426
  Transmission Date: 20140414
  Serious: Yes (Other)
  Sender: FDA-Public Use
  Company Number: DSJ-2013-06985

PATIENT
  Age: 97 Year
  Sex: Male

DRUGS (8)
  1. OLMETEC [Suspect]
     Indication: HYPERTENSION
     Route: 048
     Dates: start: 20121128, end: 20130311
  2. BAYASPIRIN (ACETYLSALICYLIC ACID)(ACETYLSALICYLIC ACID) [Concomitant]
  3. WARFARIN (WARFARIN)(WARFARIN) [Concomitant]
  4. ZYLORIC (ALLOPURINOL)(ALLOPURINOL) [Concomitant]
  5. TANATRIL (IMIDAPRIL HYDROCHLORIDE)(IMIDAPRIL HYDROCHLORIDE) [Concomitant]
  6. LASIX (FUROSEMIDE)(FUROSEMIDE) [Concomitant]
  7. XYZAL [Concomitant]
  8. PURSENNID (SENNA ALEXANDRINA LEAF)(SENNA ALEXANDRINA LEAF) [Concomitant]

REACTIONS (3)
  - Platelet count decreased [None]
  - Hepatic function abnormal [None]
  - Viral infection [None]
